FAERS Safety Report 6122536-8 (Version None)
Quarter: 2009Q1

REPORT INFORMATION
  Report Type: 
  Country: None (occurrence: None)
  Receive Date: 20090318
  Receipt Date: 20081202
  Transmission Date: 20090719
  Serious: No
  Sender: FDA-Public Use
  Company Number: US-ASTRAZENECA-2008UW25338

PATIENT
  Age: 73 Year
  Sex: Female
  Weight: 51.3 kg

DRUGS (1)
  1. SYMBICORT [Suspect]
     Indication: ASTHMA
     Dosage: 2 PUFFS TWICE A DAY
     Route: 055
     Dates: start: 20080601, end: 20080701

REACTIONS (3)
  - COUGH [None]
  - DYSPHONIA [None]
  - THROAT IRRITATION [None]
